FAERS Safety Report 8037574-8 (Version None)
Quarter: 2012Q1

REPORT INFORMATION
  Report Type: 
  Country: None (occurrence: None)
  Receive Date: 20120111
  Receipt Date: 20120105
  Transmission Date: 20120608
  Serious: Yes (Hospitalization)
  Sender: FDA-Public Use
  Company Number: FR-ABBOTT-12P-056-0890466-00

PATIENT
  Age: 32 Year
  Sex: Female

DRUGS (2)
  1. TRILEPTAL [Suspect]
     Indication: PRODUCT USED FOR UNKNOWN INDICATION
     Route: 048
     Dates: start: 20090101
  2. DEPAKENE [Suspect]
     Indication: PRODUCT USED FOR UNKNOWN INDICATION
     Route: 048

REACTIONS (3)
  - CHOLESTASIS [None]
  - SYSTEMIC INFLAMMATORY RESPONSE SYNDROME [None]
  - C-REACTIVE PROTEIN INCREASED [None]
